FAERS Safety Report 8266639-0 (Version None)
Quarter: 2012Q2

REPORT INFORMATION
  Report Type: 
  Country: None (occurrence: None)
  Receive Date: 20120406
  Receipt Date: 20120403
  Transmission Date: 20120825
  Serious: Yes (Life-Threatening, Other)
  Sender: FDA-Public Use
  Company Number: US-AMGEN-USASP2011021717

PATIENT
  Age: 47 Year
  Sex: Male
  Weight: 108.84 kg

DRUGS (3)
  1. ENBREL [Suspect]
     Indication: PRODUCT USED FOR UNKNOWN INDICATION
     Dosage: 50 MG, 2 TIMES/WK
     Route: 058
     Dates: start: 20100601, end: 20110101
  2. METHOTREXATE [Concomitant]
     Indication: PSORIASIS
     Dosage: 20 MG, QWK
     Route: 048
     Dates: start: 20090101, end: 20100601
  3. ZOCOR [Concomitant]
     Indication: HYPERCHOLESTEROLAEMIA
     Dosage: UNK
     Route: 048

REACTIONS (1)
  - OLIGODENDROGLIOMA [None]
